FAERS Safety Report 6472459-X (Version None)
Quarter: 2009Q4

REPORT INFORMATION
  Report Type: 
  Country: None (occurrence: None)
  Receive Date: 20091201
  Receipt Date: 20091123
  Transmission Date: 20100525
  Serious: Yes (Hospitalization)
  Sender: FDA-Public Use
  Company Number: KV200900812

PATIENT
  Sex: Female

DRUGS (3)
  1. PROPAFENONE HYDROCHLORIDE [Suspect]
     Indication: ATRIAL FIBRILLATION
     Dosage: 150 MG TID, ORAL
     Route: 048
     Dates: start: 20080509
  2. PROPAFENONE HYDROCHLORIDE [Suspect]
  3. PROPAFENONE HYDROCHLORIDE [Suspect]

REACTIONS (3)
  - ACTIVITIES OF DAILY LIVING IMPAIRED [None]
  - MULTIPLE INJURIES [None]
  - PRODUCT SUBSTITUTION ISSUE [None]
